FAERS Safety Report 25358107 (Version 1)
Quarter: 2025Q2

REPORT INFORMATION
  Report Type: Spontaneous
  Country: HR (occurrence: HR)
  Receive Date: 20250526
  Receipt Date: 20250526
  Transmission Date: 20250717
  Serious: Yes (Hospitalization, Other)
  Sender: STRIDES
  Company Number: HR-STRIDES ARCOLAB LIMITED-2025SP006332

PATIENT
  Age: 5 Year
  Sex: Male

DRUGS (16)
  1. ETOPOSIDE [Suspect]
     Active Substance: ETOPOSIDE
     Indication: Retinoblastoma
     Route: 065
     Dates: start: 202203, end: 202203
  2. VANCOMYCIN [Suspect]
     Active Substance: VANCOMYCIN
     Indication: Bacterial disease carrier
     Route: 065
     Dates: start: 2023
  3. VANCOMYCIN [Suspect]
     Active Substance: VANCOMYCIN
     Indication: Prophylaxis
     Route: 065
     Dates: start: 202311
  4. CARBOPLATIN [Suspect]
     Active Substance: CARBOPLATIN
     Indication: Retinoblastoma
     Route: 065
     Dates: start: 202203, end: 202203
  5. TOPOTECAN [Suspect]
     Active Substance: TOPOTECAN HYDROCHLORIDE
     Indication: Retinoblastoma
     Route: 013
     Dates: start: 202209, end: 202209
  6. TOPOTECAN [Suspect]
     Active Substance: TOPOTECAN HYDROCHLORIDE
     Route: 013
     Dates: start: 202210, end: 202210
  7. MELPHALAN [Suspect]
     Active Substance: MELPHALAN
     Indication: Retinoblastoma
     Dates: start: 202203, end: 202203
  8. MELPHALAN [Suspect]
     Active Substance: MELPHALAN
     Route: 013
     Dates: start: 202204, end: 202204
  9. MELPHALAN [Suspect]
     Active Substance: MELPHALAN
     Dates: start: 202204
  10. MELPHALAN [Suspect]
     Active Substance: MELPHALAN
     Route: 013
     Dates: start: 202205, end: 202205
  11. MELPHALAN [Suspect]
     Active Substance: MELPHALAN
     Dates: start: 202205, end: 202205
  12. MELPHALAN [Suspect]
     Active Substance: MELPHALAN
     Route: 013
     Dates: start: 202209, end: 202209
  13. MELPHALAN [Suspect]
     Active Substance: MELPHALAN
     Route: 013
     Dates: start: 202210, end: 202210
  14. INDOCYANINE GREEN [Concomitant]
     Active Substance: INDOCYANINE GREEN
     Indication: Retinoblastoma
     Route: 065
     Dates: start: 202302, end: 202302
  15. INDOCYANINE GREEN [Concomitant]
     Active Substance: INDOCYANINE GREEN
     Route: 065
     Dates: start: 202303, end: 202303
  16. INDOCYANINE GREEN [Concomitant]
     Active Substance: INDOCYANINE GREEN
     Route: 065
     Dates: start: 202303, end: 202303

REACTIONS (5)
  - Symblepharon [Unknown]
  - Neoplasm progression [Unknown]
  - Device extrusion [Unknown]
  - Cyst [Unknown]
  - Off label use [Unknown]

NARRATIVE: CASE EVENT DATE: 20230101
